FAERS Safety Report 8383695 (Version 2)
Quarter: 2013Q4

REPORT INFORMATION
  Report Type: Report from Study
  Country: MX (occurrence: MX)
  Receive Date: 20120201
  Receipt Date: 20131014
  Transmission Date: 20140711
  Serious: Yes (Life-Threatening, Other)
  Sender: FDA-Public Use
  Company Number: PHHY2012MX007683

PATIENT
  Age: 61 Year
  Sex: Female

DRUGS (2)
  1. TRILEPTAL [Suspect]
     Indication: EPILEPSY
     Dosage: 1 DF, UKN
     Route: 048
     Dates: start: 200001
  2. TRILEPTAL [Suspect]
     Dosage: 2 DF, BID
     Route: 048

REACTIONS (7)
  - Meningioma [Recovered/Resolved]
  - Hydrocephalus [Recovered/Resolved]
  - Fistula [Recovered/Resolved]
  - Nervous system disorder [Recovered/Resolved]
  - Feeling abnormal [Recovered/Resolved]
  - Sinusitis [Recovered/Resolved]
  - Influenza [Recovered/Resolved]
